FAERS Safety Report 4461972-2 (Version None)
Quarter: 2004Q3

REPORT INFORMATION
  Report Type: 
  Country: None (occurrence: None)
  Receive Date: 20040929
  Receipt Date: 20040920
  Transmission Date: 20050211
  Serious: Yes (Hospitalization)
  Sender: FDA-Public Use
  Company Number: AU-JNJFOC-20040906276

PATIENT
  Sex: Female
  Weight: 56 kg

DRUGS (2)
  1. REMINYL [Suspect]
     Indication: DRUG USE FOR UNKNOWN INDICATION
     Route: 049
     Dates: start: 20030325
  2. CARDIPRIM [Concomitant]
     Dates: start: 20030701

REACTIONS (1)
  - TRANSIENT ISCHAEMIC ATTACK [None]
